FAERS Safety Report 24021266 (Version 2)
Quarter: 2024Q3

REPORT INFORMATION
  Report Type: Spontaneous
  Country: AR (occurrence: AR)
  Receive Date: 20240627
  Receipt Date: 20240702
  Transmission Date: 20241016
  Serious: Yes (Hospitalization)
  Sender: BIOMARIN
  Company Number: AR-BIOMARINAP-AR-2024-158828

PATIENT

DRUGS (1)
  1. VOXZOGO [Suspect]
     Active Substance: VOSORITIDE
     Indication: Osteochondrodysplasia
     Dosage: 0.35 MILLILITER, QD
     Route: 058
     Dates: start: 20220803

REACTIONS (1)
  - Osteotomy [Unknown]

NARRATIVE: CASE EVENT DATE: 20240531
